FAERS Safety Report 9275389 (Version 3)
Quarter: 2013Q2

REPORT INFORMATION
  Report Type: Report from Study
  Country: US (occurrence: US)
  Receive Date: 20130507
  Receipt Date: 20130620
  Transmission Date: 20140414
  Serious: No
  Sender: FDA-Public Use
  Company Number: US-VERTEX PHARMACEUTICALS INC-2013-005742

PATIENT
  Age: 60 Year
  Sex: Male
  Weight: 78 kg

DRUGS (5)
  1. VX-950 (TELAPREVIR) [Suspect]
     Indication: HEPATITIS C
     Dosage: 750 MG, TID
     Route: 048
     Dates: start: 20130503
  2. COPEGUS [Suspect]
     Indication: HEPATITIS C
     Dosage: 600 MG AM/400 MG PM, BID
     Route: 048
     Dates: start: 20130503
  3. PEGASYS [Suspect]
     Indication: HEPATITIS C
     Dosage: 180 ?G, QW
     Route: 058
     Dates: start: 20130503
  4. OTHER DRUGS USED IN DIABETES [Concomitant]
     Indication: TYPE 2 DIABETES MELLITUS
  5. DIURETIC [Concomitant]
     Indication: HYPERTENSION
     Dosage: UNK

REACTIONS (4)
  - Headache [Recovered/Resolved]
  - Weight decreased [Not Recovered/Not Resolved]
  - Chills [Recovered/Resolved]
  - Fatigue [Recovered/Resolved]
